FAERS Safety Report 4860637-2 (Version None)
Quarter: 2005Q4

REPORT INFORMATION
  Report Type: 
  Country: None (occurrence: None)
  Receive Date: 20051216
  Receipt Date: 20051209
  Transmission Date: 20060501
  Serious: Yes (Other)
  Sender: FDA-Public Use
  Company Number: 200514944BCC

PATIENT
  Age: 51 Year
  Sex: Male
  Weight: 63.5036 kg

DRUGS (1)
  1. ALEVE (CAPLET) [Suspect]
     Indication: PAIN
     Dosage: ORAL
     Route: 048
     Dates: start: 20051101

REACTIONS (1)
  - THROMBOSIS [None]
